FAERS Safety Report 8372337-5 (Version None)
Quarter: 2012Q2

REPORT INFORMATION
  Report Type: 
  Country: None (occurrence: None)
  Receive Date: 20120521
  Receipt Date: 20120328
  Transmission Date: 20120825
  Serious: No
  Sender: FDA-Public Use
  Company Number: US-PFIZER INC-2012120296

PATIENT

DRUGS (2)
  1. EFFEXOR [Suspect]
     Dosage: UNK
  2. RESVERATROL [Interacting]
     Dosage: UNK

REACTIONS (3)
  - DRUG INEFFECTIVE [None]
  - DRUG INTERACTION [None]
  - DEPRESSION [None]
